FAERS Safety Report 21990203 (Version 1)
Quarter: 2023Q1

REPORT INFORMATION
  Report Type: Spontaneous
  Country: US (occurrence: US)
  Receive Date: 20230214
  Receipt Date: 20230214
  Transmission Date: 20230418
  Serious: No
  Sender: FDA-Public Use
  Company Number: US-PFIZER INC-202300065045

PATIENT
  Age: 29 Year
  Sex: Female

DRUGS (5)
  1. PAXLOVID [Suspect]
     Active Substance: NIRMATRELVIR\RITONAVIR
     Indication: COVID-19 treatment
     Dosage: UNK
     Dates: start: 20230127, end: 20230202
  2. DAYTIME/NIGHTTIME VAPOR ICE COLD AND FLU [Concomitant]
     Dates: start: 20230125, end: 20230127
  3. FLO PMS GUMMY VITAMINS [Concomitant]
     Dates: end: 20230125
  4. HERBAL NOS/MINERALS NOS/VITAMINS NOS [Concomitant]
     Dates: end: 20230125
  5. TRIAMCINOLONE ACETONIDE [Concomitant]
     Active Substance: TRIAMCINOLONE ACETONIDE
     Dates: end: 20230125

REACTIONS (3)
  - COVID-19 [Unknown]
  - Disease recurrence [Unknown]
  - Inappropriate schedule of product administration [Unknown]

NARRATIVE: CASE EVENT DATE: 20230212
